FAERS Safety Report 5773117-7 (Version None)
Quarter: 2008Q2

REPORT INFORMATION
  Report Type: 
  Country: None (occurrence: None)
  Receive Date: 20080615
  Receipt Date: 20080402
  Transmission Date: 20081010
  Serious: No
  Sender: FDA-Public Use
  Company Number: US-BAYER-200811435BCC

PATIENT
  Age: 58 Year
  Sex: Female
  Weight: 67 kg

DRUGS (11)
  1. ALEVE (CAPLET) [Suspect]
     Indication: PAIN
     Dosage: UNIT DOSE: 220 MG
     Route: 048
     Dates: start: 20080329, end: 20080101
  2. ALEVE [Suspect]
     Indication: PAIN
     Dosage: UNIT DOSE: 220 MG
     Route: 048
     Dates: start: 20080101
  3. VISINE EYE DROPS [Concomitant]
  4. NASAL SPRAY [Concomitant]
  5. M.V.I. [Concomitant]
  6. LASIX [Concomitant]
  7. LORATADINE [Concomitant]
  8. FLEXERIL [Concomitant]
  9. KLONOPIN [Concomitant]
  10. ATENOLOL [Concomitant]
  11. COUGH SYRUPS [Concomitant]

REACTIONS (1)
  - NO ADVERSE EVENT [None]
